FAERS Safety Report 15350570 (Version 1)
Quarter: 2018Q3

REPORT INFORMATION
  Report Type: Spontaneous
  Country: DE (occurrence: DE)
  Receive Date: 20180905
  Receipt Date: 20180905
  Transmission Date: 20181010
  Serious: Yes (Life-Threatening, Hospitalization, Other)
  Sender: FDA-Public Use
  Company Number: DE-VELOXIS PHARMACEUTICALS, INC.-2018VELDE1151

PATIENT
  Age: 27 Year
  Sex: Female
  Weight: 50 kg

DRUGS (4)
  1. CYCLOSPORINE. [Concomitant]
     Active Substance: CYCLOSPORINE
     Indication: PRODUCT USED FOR UNKNOWN INDICATION
     Dosage: 120 MG, BID
     Route: 065
     Dates: start: 20180627
  2. LEMTRADA [Suspect]
     Active Substance: ALEMTUZUMAB
     Dosage: 12 MG, QD
     Route: 042
     Dates: start: 20171205, end: 20171209
  3. LEMTRADA [Suspect]
     Active Substance: ALEMTUZUMAB
     Indication: MULTIPLE SCLEROSIS
     Dosage: 12 MG, QD
     Route: 042
     Dates: start: 201610, end: 201610
  4. ENVARSUS XR [Suspect]
     Active Substance: TACROLIMUS
     Indication: PRODUCT USED FOR UNKNOWN INDICATION
     Dosage: 3 MG, BID
     Route: 065
     Dates: start: 20180627, end: 20180727

REACTIONS (40)
  - Asthenia [Unknown]
  - Periportal oedema [Recovering/Resolving]
  - Abdominal pain upper [Recovering/Resolving]
  - Swelling face [Unknown]
  - Epilepsy [Recovering/Resolving]
  - Myalgia [Unknown]
  - Intentional product misuse [Unknown]
  - Jaundice [Recovering/Resolving]
  - General physical health deterioration [Recovering/Resolving]
  - Hepatic encephalopathy [Recovering/Resolving]
  - Cholecystitis [Recovering/Resolving]
  - Mood swings [Unknown]
  - Fatigue [Unknown]
  - Confusional state [Unknown]
  - Ataxia [Unknown]
  - Splenomegaly [Unknown]
  - Personality change [Unknown]
  - Language disorder [Recovering/Resolving]
  - Autoimmune hepatitis [Recovering/Resolving]
  - Vomiting [Unknown]
  - Weight decreased [Unknown]
  - Mood altered [Unknown]
  - Autoimmune thyroiditis [Recovering/Resolving]
  - Lymphadenopathy [Recovering/Resolving]
  - Hepatomegaly [Unknown]
  - Pyrexia [Recovering/Resolving]
  - Abdominal pain [Unknown]
  - Hypothyroidism [Unknown]
  - Ovarian cyst [Recovering/Resolving]
  - Toxic encephalopathy [Unknown]
  - Acute hepatic failure [Recovering/Resolving]
  - Hepatitis acute [Recovering/Resolving]
  - Atelectasis [Recovering/Resolving]
  - Disorientation [Unknown]
  - Arthralgia [Unknown]
  - Coma [Unknown]
  - Ascites [Recovering/Resolving]
  - Hepatitis infectious mononucleosis [Recovering/Resolving]
  - Depression [Unknown]
  - Pleural effusion [Recovering/Resolving]

NARRATIVE: CASE EVENT DATE: 2017
